FAERS Safety Report 5840102-6 (Version None)
Quarter: 2008Q3

REPORT INFORMATION
  Report Type: 
  Country: None (occurrence: None)
  Receive Date: 20080811
  Receipt Date: 20080804
  Transmission Date: 20090109
  Serious: Yes (Hospitalization)
  Sender: FDA-Public Use
  Company Number: B0532006A

PATIENT
  Age: 80 Year
  Sex: Female

DRUGS (6)
  1. DEROXAT [Suspect]
     Dosage: 20MG PER DAY
     Route: 048
     Dates: end: 20080522
  2. EXFORGE [Suspect]
     Route: 048
     Dates: start: 20080201, end: 20080522
  3. ARICEPT [Concomitant]
     Dosage: 10MG PER DAY
     Route: 065
  4. PRAZEPAM [Concomitant]
     Route: 065
  5. ZOPICLONE [Concomitant]
     Dosage: 7.5MG PER DAY
     Route: 065
  6. PROZAC [Concomitant]
     Route: 065
     Dates: start: 20080616, end: 20080627

REACTIONS (4)
  - CHOLESTASIS [None]
  - HEPATIC ENZYME INCREASED [None]
  - INFLAMMATION [None]
  - LUNG DISORDER [None]
